FAERS Safety Report 9773880 (Version 5)
Quarter: 2014Q1

REPORT INFORMATION
  Report Type: Spontaneous
  Country: IT (occurrence: IT)
  Receive Date: 20131220
  Receipt Date: 20140124
  Transmission Date: 20141002
  Serious: Yes (Life-Threatening, Hospitalization)
  Sender: FDA-Public Use
  Company Number: IT-RANBAXY-2013RR-76379

PATIENT
  Age: 93 Year
  Sex: Male

DRUGS (7)
  1. LORAZEPAM [Suspect]
     Indication: COGNITIVE DISORDER
     Dosage: 1 MG/DAY
     Route: 048
     Dates: end: 20130920
  2. LORAZEPAM [Suspect]
     Indication: VASCULAR ENCEPHALOPATHY
  3. STILNOX [Suspect]
     Indication: COGNITIVE DISORDER
     Dosage: 10 MG/DAY
     Route: 048
     Dates: end: 20130920
  4. PANTORC [Concomitant]
     Indication: PROPHYLAXIS AGAINST GASTROINTESTINAL ULCER
     Dosage: 20 MG
     Route: 048
     Dates: end: 20130920
  5. SEROQUEL [Concomitant]
     Indication: PRODUCT USED FOR UNKNOWN INDICATION
     Dosage: 50 MG
     Route: 048
  6. HALDOL [Concomitant]
     Indication: AGITATION
     Dosage: 10 GTT
     Route: 048
  7. CARDIOASPIRIN [Concomitant]
     Indication: THROMBOSIS PROPHYLAXIS
     Dosage: 100 MG
     Route: 048
     Dates: end: 20130920

REACTIONS (2)
  - Subdural haematoma [Recovering/Resolving]
  - Drop attacks [Recovering/Resolving]
